FAERS Safety Report 23828451 (Version 3)
Quarter: 2025Q2

REPORT INFORMATION
  Report Type: Report from Study
  Country: BR (occurrence: BR)
  Receive Date: 20240508
  Receipt Date: 20250410
  Transmission Date: 20250716
  Serious: Yes (Hospitalization, Other)
  Sender: CELLTRION
  Company Number: BR-CELLTRION INC.-2024BR010091

PATIENT

DRUGS (5)
  1. INFLIXIMAB-DYYB [Suspect]
     Active Substance: INFLIXIMAB-DYYB
     Indication: Spondylitis
     Route: 042
  2. INFLIXIMAB [Suspect]
     Active Substance: INFLIXIMAB
     Indication: Spondylitis
  3. TOPIRAMATE [Concomitant]
     Active Substance: TOPIRAMATE
     Indication: Anxiety
     Route: 065
  4. QUETIAPINE [Concomitant]
     Active Substance: QUETIAPINE
     Indication: Anxiety
     Route: 065
  5. ESCITALOPRAM [Concomitant]
     Active Substance: ESCITALOPRAM OXALATE
     Indication: Anxiety
     Route: 065

REACTIONS (15)
  - Anal injury [Not Recovered/Not Resolved]
  - Oxygen saturation decreased [Recovering/Resolving]
  - Vulvovaginal injury [Not Recovered/Not Resolved]
  - Anxiety [Recovering/Resolving]
  - Immunosuppression [Unknown]
  - Cough [Unknown]
  - Dyspnoea [Unknown]
  - Defaecation urgency [Unknown]
  - Psychotic disorder [Unknown]
  - Self-injurious ideation [Unknown]
  - Adverse drug reaction [Unknown]
  - Impaired healing [Not Recovered/Not Resolved]
  - Nausea [Unknown]
  - Product dose omission issue [Unknown]
  - Product substitution issue [Unknown]
